FAERS Safety Report 23265290 (Version 1)
Quarter: 2023Q4

REPORT INFORMATION
  Report Type: Spontaneous
  Country: CA (occurrence: None)
  Receive Date: 20231206
  Receipt Date: 20231206
  Transmission Date: 20240110
  Serious: Yes (Hospitalization)
  Sender: FDA-Public Use
  Company Number: CA-ROCHE-3468385

PATIENT
  Age: 63 Year
  Sex: Male
  Weight: 140 kg

DRUGS (7)
  1. RITUXAN [Suspect]
     Active Substance: RITUXIMAB
     Indication: Glomerulonephritis rapidly progressive
     Route: 041
  2. POLYETHYLENE GLYCOL 3350 [Concomitant]
     Active Substance: POLYETHYLENE GLYCOL 3350
  3. PREDNISONE [Concomitant]
     Active Substance: PREDNISONE
  4. ROSUVASTATIN [Concomitant]
     Active Substance: ROSUVASTATIN
  5. SEPTRA [Concomitant]
     Active Substance: SULFAMETHOXAZOLE\TRIMETHOPRIM
  6. ZOPICLONE [Concomitant]
     Active Substance: ZOPICLONE
  7. VITAMIN B12 [Concomitant]
     Active Substance: CYANOCOBALAMIN

REACTIONS (4)
  - Colostomy [Recovered/Resolved]
  - Diverticulitis [Recovered/Resolved]
  - Pain in jaw [Recovered/Resolved]
  - Squamous cell carcinoma [Recovered/Resolved]
